FAERS Safety Report 16065998 (Version 2)
Quarter: 2019Q1

REPORT INFORMATION
  Report Type: Spontaneous
  Country: None (occurrence: FR)
  Receive Date: 20190313
  Receipt Date: 20190315
  Transmission Date: 20190418
  Serious: Yes (Other)
  Sender: FDA-Public Use
  Company Number: FR-ORION CORPORATION ORION PHARMA-TREX2019-0700

PATIENT
  Age: 21 Year
  Sex: Female

DRUGS (2)
  1. METHOTREXATE. [Suspect]
     Active Substance: METHOTREXATE
     Indication: PSORIASIS
     Dosage: TEST DOSE OF 5 MG
     Route: 065
  2. FOLIC ACID. [Concomitant]
     Active Substance: FOLIC ACID
     Indication: PSORIASIS
     Dosage: 5 OR 10 MG 48 H AFTER METHOTREXATE DOSE
     Route: 065

REACTIONS (2)
  - Hypersensitivity [Unknown]
  - Lung disorder [Unknown]
